FAERS Safety Report 19421595 (Version 1)
Quarter: 2021Q2

REPORT INFORMATION
  Report Type: Spontaneous
  Country: PL (occurrence: PL)
  Receive Date: 20210616
  Receipt Date: 20210616
  Transmission Date: 20210717
  Serious: Yes (Hospitalization)
  Sender: FDA-Public Use
  Company Number: PL-SUN PHARMACEUTICAL INDUSTRIES LTD-2021RR-300475

PATIENT
  Age: 62 Year
  Sex: Female

DRUGS (2)
  1. GEMCITABINE. [Suspect]
     Active Substance: GEMCITABINE
     Indication: BLADDER TRANSITIONAL CELL CARCINOMA
     Dosage: UNK
     Route: 065
  2. CISPLATIN. [Suspect]
     Active Substance: CISPLATIN
     Indication: BLADDER TRANSITIONAL CELL CARCINOMA
     Dosage: UNK
     Route: 065

REACTIONS (1)
  - Stress cardiomyopathy [Unknown]
